FAERS Safety Report 22275167 (Version 5)
Quarter: 2023Q2

REPORT INFORMATION
  Report Type: Report from Study
  Country: GB (occurrence: GB)
  Receive Date: 20230502
  Receipt Date: 20230615
  Transmission Date: 20230722
  Serious: Yes (Death, Other)
  Sender: FDA-Public Use
  Company Number: GB-ROCHE-3331059

PATIENT
  Age: 70 Year
  Sex: Female

DRUGS (21)
  1. DOCETAXEL [Suspect]
     Active Substance: DOCETAXEL
     Indication: Breast cancer
     Dosage: 1 DOSAGE FORM (SINGLE 3 WEEK, NUMBER OF CYCLES PER REGIMEN 6)
     Route: 042
     Dates: start: 20151009, end: 20151210
  2. DOCETAXEL [Suspect]
     Active Substance: DOCETAXEL
     Dosage: 1 DOSAGE FORM (SINGLE 3 WEEKS)
     Route: 042
     Dates: start: 20160111, end: 20160209
  3. TRASTUZUMAB [Suspect]
     Active Substance: TRASTUZUMAB
     Indication: Breast cancer
     Dosage: 1 DOSAGE FORM (SINGLE 3 WEEKS)
     Route: 042
     Dates: start: 20171012, end: 20180801
  4. TRASTUZUMAB [Suspect]
     Active Substance: TRASTUZUMAB
     Dosage: 1 DOSAGE FORM (SINGLE 3 WEEKS)
     Route: 042
     Dates: start: 20151008, end: 20151008
  5. TRASTUZUMAB [Suspect]
     Active Substance: TRASTUZUMAB
     Dosage: 1 DOSAGE FORM (SINGLE 3 WEEKS)
     Route: 042
     Dates: end: 20170922
  6. TRASTUZUMAB [Suspect]
     Active Substance: TRASTUZUMAB
     Dosage: 1 DOSAGE FORM(SINGLE 3 WEEKS)I
     Route: 042
     Dates: start: 20151029, end: 20170413
  7. PERTUZUMAB [Suspect]
     Active Substance: PERTUZUMAB
     Indication: Breast cancer
     Dosage: 1 DOSAGE FORM (SINGLE 3 WEEKS)
     Route: 042
     Dates: start: 20151029, end: 20170413
  8. PERTUZUMAB [Suspect]
     Active Substance: PERTUZUMAB
     Dosage: 1 DOSAGE FORM (SINGLE 3 WEEKS, NUMBER OF CYCLES PER REGIMEN 1)
     Route: 042
     Dates: start: 20151008, end: 20151008
  9. PERTUZUMAB [Suspect]
     Active Substance: PERTUZUMAB
     Dosage: UNK  Q3W
     Route: 042
     Dates: start: 20170921, end: 20180329
  10. BUTYLSCOPOLAMINE BROMIDE [Concomitant]
     Active Substance: BUTYLSCOPOLAMINE BROMIDE
     Dosage: 10 MILLIGRAM
     Route: 048
  11. DEXAMETHASONE [Concomitant]
     Active Substance: DEXAMETHASONE
     Indication: Headache
     Dosage: UNK
     Route: 065
  12. DOXAZOSIN [Concomitant]
     Active Substance: DOXAZOSIN MESYLATE
     Dosage: 2 MILLIGRAM, BID
     Route: 048
  13. ESOMEPRAZOLE [Concomitant]
     Active Substance: ESOMEPRAZOLE
     Dosage: 20 MILLILITER, QD
     Route: 048
     Dates: start: 20200101, end: 20200101
  14. FUROSEMIDE [Concomitant]
     Active Substance: FUROSEMIDE
     Dosage: 20 MILLIGRAM, QD
     Route: 048
     Dates: start: 20200101, end: 20200101
  15. HYDROCHLOROTHIAZIDE [Concomitant]
     Active Substance: HYDROCHLOROTHIAZIDE
     Dosage: UNK UNK, QD
     Route: 048
  16. METOPROLOL [Concomitant]
     Active Substance: METOPROLOL
     Dosage: 25 MILLIGRAM, QD
     Route: 048
     Dates: start: 20170522, end: 20170522
  17. ONDANSETRON [Concomitant]
     Active Substance: ONDANSETRON
     Indication: Nausea
     Dosage: 2 MILLIGRAM
     Route: 048
  18. PERINDOPRIL [Concomitant]
     Active Substance: PERINDOPRIL
     Dosage: 4 MILLIGRAM, QD
     Route: 048
     Dates: start: 20161123
  19. PROCHLORPERAZINE [Concomitant]
     Active Substance: PROCHLORPERAZINE
     Indication: Nausea
     Dosage: UNK
     Route: 065
  20. SYMBICORT [Concomitant]
     Active Substance: BUDESONIDE\FORMOTEROL FUMARATE DIHYDRATE
     Dosage: UNK, BID (100.00 PUFF)
     Route: 065
  21. TELMISARTAN [Concomitant]
     Active Substance: TELMISARTAN
     Dosage: UNK, QD
     Route: 048

REACTIONS (1)
  - Metastatic neoplasm [Fatal]

NARRATIVE: CASE EVENT DATE: 20200101
